FAERS Safety Report 10633284 (Version 1)
Quarter: 2014Q4

REPORT INFORMATION
  Report Type: Spontaneous
  Country: FR (occurrence: None)
  Receive Date: 20141203
  Receipt Date: 20141203
  Transmission Date: 20150529
  Serious: Yes (Hospitalization)
  Sender: FDA-Public Use
  Company Number: FR-2014VAL000610

PATIENT
  Age: 76 Year
  Sex: Male

DRUGS (1)
  1. BROMOCRIPTINE MESYLATE [Suspect]
     Active Substance: BROMOCRIPTINE MESYLATE
     Indication: PARKINSON^S DISEASE

REACTIONS (5)
  - Coronary artery disease [None]
  - Aortic valve incompetence [None]
  - Tricuspid valve incompetence [None]
  - Mitral valve incompetence [None]
  - Cardiac failure congestive [None]
